FAERS Safety Report 9714627 (Version 1)
Quarter: 2013Q4

REPORT INFORMATION
  Report Type: Spontaneous
  Country: GB (occurrence: GB)
  Receive Date: 20131126
  Receipt Date: 20131126
  Transmission Date: 20140711
  Serious: Yes (Disabling, Other)
  Sender: FDA-Public Use
  Company Number: GB-TEVA-445734ISR

PATIENT
  Age: 38 Year
  Sex: Male
  Weight: 106 kg

DRUGS (4)
  1. LISINOPRIL [Suspect]
     Indication: HYPERTENSION
     Route: 048
  2. PARACETAMOL [Concomitant]
  3. ANTIHYPERTENSIVE NOS [Concomitant]
  4. ANTICHOLESTEROL MEDICATION [Concomitant]

REACTIONS (1)
  - Dry mouth [Not Recovered/Not Resolved]
